FAERS Safety Report 8564078-6 (Version None)
Quarter: 2012Q3

REPORT INFORMATION
  Report Type: 
  Country: None (occurrence: None)
  Receive Date: 20120803
  Receipt Date: 20120726
  Transmission Date: 20120928
  Serious: Yes (Other)
  Sender: FDA-Public Use
  Company Number: US-BAYER-201017353NA

PATIENT
  Age: 39 Year
  Sex: Female
  Weight: 63.636 kg

DRUGS (18)
  1. YAZ [Suspect]
     Dosage: UNK
     Dates: start: 20061101, end: 20080301
  2. YASMIN [Suspect]
     Dosage: UNK
     Dates: start: 20050801, end: 20061101
  3. FLUCONAZOLE [Concomitant]
  4. IBUPROFEN (ADVIL) [Concomitant]
     Indication: ANALGESIC THERAPY
  5. VALTREX [Concomitant]
  6. IMITREX [Concomitant]
  7. ASTELIN [Concomitant]
  8. TYLENOL (CAPLET) [Concomitant]
     Indication: ANALGESIC THERAPY
  9. AZITHROMYCIN [Concomitant]
  10. NITROFURANTOIN [Concomitant]
  11. PLAVIX [Concomitant]
  12. YASMIN [Suspect]
     Dosage: UNK
     Dates: start: 20050101, end: 20080101
  13. CLINDAMYCIN [Concomitant]
  14. TRAMADOL HCL [Concomitant]
  15. KEFLEX [Concomitant]
  16. YAZ [Suspect]
     Dosage: UNK UNK, UNK
     Route: 048
     Dates: start: 20050101, end: 20080101
  17. ALLEGRA [Concomitant]
     Indication: MULTIPLE ALLERGIES
     Dates: start: 20050101
  18. LEVAQUIN [Concomitant]

REACTIONS (6)
  - THROMBOSIS [None]
  - WEIGHT INCREASED [None]
  - PAIN [None]
  - OEDEMA PERIPHERAL [None]
  - DEEP VEIN THROMBOSIS [None]
  - FEAR [None]
